FAERS Safety Report 13657388 (Version 2)
Quarter: 2017Q2

REPORT INFORMATION
  Report Type: Report from Study
  Country: US (occurrence: US)
  Receive Date: 20170615
  Receipt Date: 20170627
  Transmission Date: 20170830
  Serious: Yes (Death, Hospitalization)
  Sender: FDA-Public Use
  Company Number: US-ASTRAZENECA-2017SE60456

PATIENT
  Age: 65 Year
  Sex: Female
  Weight: 56.6 kg

DRUGS (4)
  1. SYNTHROID [Concomitant]
     Active Substance: LEVOTHYROXINE SODIUM
     Indication: HYPOTHYROIDISM
     Dosage: 112 MCG BY MOUTH DAILY
     Route: 065
  2. FLOVENT [Concomitant]
     Active Substance: FLUTICASONE PROPIONATE
     Indication: ASTHMA
     Dosage: 2 PUFFS TWICE DAILY INHALER AS NEEDED
     Route: 065
  3. MEDI4736 [Suspect]
     Active Substance: DURVALUMAB
     Indication: OVARIAN CANCER
     Route: 042
     Dates: start: 20170424, end: 20170606
  4. OLAPARIB [Suspect]
     Active Substance: OLAPARIB
     Indication: OVARIAN CANCER
     Dosage: BY MOUTH
     Route: 048
     Dates: start: 20170424, end: 20170606

REACTIONS (9)
  - Malaise [Unknown]
  - Fatigue [Unknown]
  - Nausea [Unknown]
  - Vomiting [Unknown]
  - Dehydration [Unknown]
  - Hyponatraemia [Unknown]
  - Constipation [Unknown]
  - Decreased appetite [Unknown]
  - Disease progression [Fatal]

NARRATIVE: CASE EVENT DATE: 20170606
